FAERS Safety Report 18851475 (Version 1)
Quarter: 2021Q1

REPORT INFORMATION
  Report Type: Spontaneous
  Country: DE (occurrence: DE)
  Receive Date: 20210205
  Receipt Date: 20210205
  Transmission Date: 20210420
  Serious: Yes (Death, Hospitalization)
  Sender: FDA-Public Use
  Company Number: NVSC2021DE025964

PATIENT
  Sex: Male

DRUGS (1)
  1. ENTRESTO [Suspect]
     Active Substance: SACUBITRIL\VALSARTAN
     Indication: CARDIAC FAILURE
     Dosage: 100 MG, BID (49/51MG, 1?0?1 )
     Route: 065
     Dates: start: 2017, end: 2019

REACTIONS (7)
  - Multiple organ dysfunction syndrome [Fatal]
  - Spondylitis [Fatal]
  - Myocardial infarction [Unknown]
  - Splenic rupture [Fatal]
  - Acute kidney injury [Fatal]
  - Hypotension [Unknown]
  - Pleurisy [Fatal]

NARRATIVE: CASE EVENT DATE: 2019
